FAERS Safety Report 4359982-9 (Version None)
Quarter: 2004Q2

REPORT INFORMATION
  Report Type: 
  Country: None (occurrence: None)
  Receive Date: 20040518
  Receipt Date: 20040518
  Transmission Date: 20050107
  Serious: Yes (Disabling)
  Sender: FDA-Public Use
  Company Number: None

PATIENT
  Sex: Female
  Weight: 68.0396 kg

DRUGS (1)
  1. PAXIL [Suspect]
     Indication: DEPRESSION
     Dosage: 1 A DAY 10MG-2.5
     Dates: start: 20001201, end: 20040514

REACTIONS (3)
  - AGITATION [None]
  - HEADACHE [None]
  - IMPAIRED WORK ABILITY [None]
